FAERS Safety Report 8149077-0 (Version None)
Quarter: 2012Q1

REPORT INFORMATION
  Report Type: 
  Country: None (occurrence: None)
  Receive Date: 20120218
  Receipt Date: 20110829
  Transmission Date: 20120608
  Serious: No
  Sender: FDA-Public Use
  Company Number: US-ALLERGAN-1111551US

PATIENT
  Age: 48 Year
  Sex: Female

DRUGS (3)
  1. BOTULINUM TOXIN TYPE A [Suspect]
     Indication: MIGRAINE
     Dosage: 200 UNITS, SINGLE
     Route: 030
     Dates: start: 20110713, end: 20110713
  2. VITAMIN D [Concomitant]
  3. UNSPECIFIED PAIN KILLER [Concomitant]

REACTIONS (2)
  - MUSCULAR WEAKNESS [None]
  - NECK PAIN [None]
